FAERS Safety Report 5099213-8 (Version None)
Quarter: 2006Q3

REPORT INFORMATION
  Report Type: 
  Country: None (occurrence: None)
  Receive Date: 20060731
  Receipt Date: 20051010
  Transmission Date: 20061208
  Serious: Yes (Hospitalization)
  Sender: FDA-Public Use
  Company Number: 218481

PATIENT
  Age: 42 Year
  Sex: Female
  Weight: 92 kg

DRUGS (4)
  1. HERCEPTIN [Suspect]
     Indication: BREAST CANCER
     Dosage: 2 MG/KG, 1/WEEK
     Dates: start: 20050706
  2. RADIATION THERAPY(RADIATION THERAPY) [Suspect]
     Indication: BREAST CANCER
  3. CISPLATIN [Concomitant]
  4. ADRIAMYCIN PFS [Concomitant]

REACTIONS (3)
  - DYSPNOEA [None]
  - PNEUMONITIS [None]
  - PYREXIA [None]
